FAERS Safety Report 9837692 (Version 1)
Quarter: 2014Q1

REPORT INFORMATION
  Report Type: Spontaneous
  Country: US (occurrence: None)
  Receive Date: 20140117
  Receipt Date: 20140117
  Transmission Date: 20141002
  Serious: Yes (Other)
  Sender: FDA-Public Use
  Company Number: None

PATIENT
  Sex: Female

DRUGS (1)
  1. BOTOX 200 UNITS ALLERGAN [Suspect]
     Dosage: 200UNITS  EVERY 3 MONTHS  IM
     Route: 030
     Dates: start: 20131024

REACTIONS (4)
  - Rash [None]
  - Skin exfoliation [None]
  - Pruritus [None]
  - Rash [None]
